FAERS Safety Report 10078763 (Version 1)
Quarter: 2014Q2

REPORT INFORMATION
  Report Type: Spontaneous
  Country: ES (occurrence: None)
  Receive Date: 20140411
  Receipt Date: 20140411
  Transmission Date: 20141212
  Serious: Yes (Other)
  Sender: FDA-Public Use
  Company Number: AUR-APL-2014-04288

PATIENT
  Age: 26 Year
  Sex: Female
  Weight: 75 kg

DRUGS (3)
  1. LAMOTRIGINE [Suspect]
     Indication: EPILEPSY
     Dosage: 200 MG
     Route: 048
     Dates: start: 20120608, end: 20130307
  2. ORFIRIL [Suspect]
     Indication: EPILEPSY
     Dosage: 1 D
     Route: 048
     Dates: start: 20120608, end: 20130307
  3. FOLSAURE (FOLIC ACID) [Concomitant]

REACTIONS (3)
  - Maternal exposure during pregnancy [None]
  - Gestational diabetes [None]
  - Polyhydramnios [None]
